FAERS Safety Report 4531353-1 (Version None)
Quarter: 2004Q4

REPORT INFORMATION
  Report Type: 
  Country: None (occurrence: None)
  Receive Date: 20041206
  Receipt Date: 20040915
  Transmission Date: 20050328
  Serious: No
  Sender: FDA-Public Use
  Company Number: USA040978414

PATIENT
  Age: 50 Year
  Sex: Female

DRUGS (4)
  1. CYMBALTA [Suspect]
     Dosage: 30 MG
  2. CELEXA [Concomitant]
  3. CONCERTA (METHYLPHENIDATE) [Concomitant]
  4. CLONOPIN (CLONAZEPAM) [Concomitant]

REACTIONS (1)
  - VISION BLURRED [None]
